FAERS Safety Report 15731052 (Version 2)
Quarter: 2018Q4

REPORT INFORMATION
  Report Type: Spontaneous
  Country: US (occurrence: US)
  Receive Date: 20181217
  Receipt Date: 20181220
  Transmission Date: 20190205
  Serious: Yes (Life-Threatening, Other)
  Sender: FDA-Public Use
  Company Number: US-PFIZER INC-2018516374

PATIENT
  Age: 71 Year
  Sex: Female
  Weight: 158 kg

DRUGS (1)
  1. LYRICA [Suspect]
     Active Substance: PREGABALIN
     Indication: SPINAL OPERATION
     Dosage: 75 MG, 2X/DAY
     Route: 048
     Dates: start: 20181210, end: 20181211

REACTIONS (8)
  - Pulse absent [Unknown]
  - Raynaud^s phenomenon [Unknown]
  - Hallucination [Recovering/Resolving]
  - Mouth swelling [Unknown]
  - Cardiovascular disorder [Unknown]
  - Pain in extremity [Unknown]
  - Skin discolouration [Recovering/Resolving]
  - Dyspnoea [Unknown]

NARRATIVE: CASE EVENT DATE: 20181211
